FAERS Safety Report 5141836-1 (Version None)
Quarter: 2006Q4

REPORT INFORMATION
  Report Type: 
  Country: None (occurrence: None)
  Receive Date: 20061027
  Receipt Date: 20061017
  Transmission Date: 20070319
  Serious: Yes (Hospitalization)
  Sender: FDA-Public Use
  Company Number: 2006129221

PATIENT
  Age: 86 Year
  Sex: Male

DRUGS (5)
  1. ATARAX [Suspect]
     Dosage: 25 MG, ORAL
     Route: 048
     Dates: start: 20060515
  2. DIGOXIN [Concomitant]
  3. SERENOA REPENS [Concomitant]
  4. FLUINDIONE [Concomitant]
  5. PERINDOPRIL ERBUMINE [Concomitant]

REACTIONS (6)
  - BLOOD CREATININE INCREASED [None]
  - BLOOD CULTURE POSITIVE [None]
  - KLEBSIELLA INFECTION [None]
  - SEPSIS [None]
  - URINARY RETENTION [None]
  - URINARY TRACT INFECTION [None]
